FAERS Safety Report 6639330-1 (Version None)
Quarter: 2010Q1

REPORT INFORMATION
  Report Type: 
  Country: None (occurrence: None)
  Receive Date: 20100315
  Receipt Date: 20100301
  Transmission Date: 20100710
  Serious: Yes (Death, Other)
  Sender: FDA-Public Use
  Company Number: KADN20100007

PATIENT
  Age: 22 Year
  Sex: 0

DRUGS (3)
  1. MORPHINE [Suspect]
     Dosage: PER ORAL
     Route: 048
     Dates: end: 20080101
  2. ETHANOL [Suspect]
     Dosage: PER ORAL
     Route: 048
     Dates: end: 20080101
  3. ALPRAZOLAM [Suspect]
     Dosage: PER ORAL
     Route: 048

REACTIONS (4)
  - ACCIDENTAL DEATH [None]
  - ASPIRATION [None]
  - CARDIOMEGALY [None]
  - OVERDOSE [None]
